FAERS Safety Report 7019667-7 (Version None)
Quarter: 2010Q3

REPORT INFORMATION
  Report Type: 
  Country: None (occurrence: None)
  Receive Date: 20100928
  Receipt Date: 20100928
  Transmission Date: 20110219
  Serious: Yes (Other)
  Sender: FDA-Public Use
  Company Number: None

PATIENT
  Age: 43 Year
  Sex: Female
  Weight: 74.8435 kg

DRUGS (1)
  1. LEVAQUIN [Suspect]
     Indication: EAR INFECTION
     Dosage: 1 PILL DAILY PO
     Route: 048
     Dates: start: 20100718, end: 20100724

REACTIONS (6)
  - ANXIETY [None]
  - DEPRESSION [None]
  - FATIGUE [None]
  - MOVEMENT DISORDER [None]
  - PALPITATIONS [None]
  - TENDONITIS [None]
